FAERS Safety Report 5879041-3 (Version None)
Quarter: 2008Q3

REPORT INFORMATION
  Report Type: 
  Country: None (occurrence: None)
  Receive Date: 20080912
  Receipt Date: 20080908
  Transmission Date: 20090109
  Serious: Yes (Death, Hospitalization, Other)
  Sender: FDA-Public Use
  Company Number: PHBS2008FR05653

PATIENT
  Age: 40 Year
  Sex: Male

DRUGS (3)
  1. DEFEROXAMINE MESYLATE [Suspect]
     Indication: IRON OVERLOAD
     Dosage: UNK
     Route: 058
     Dates: start: 19950101
  2. DEFEROXAMINE MESYLATE [Suspect]
     Indication: SIDEROBLASTIC ANAEMIA
     Dosage: 3 G/DAY NOCTURNAL, 8 H LONG, 5 DAYS/WEEK).
     Route: 058
  3. DEFERIPRONE [Suspect]
     Indication: IRON OVERLOAD
     Dosage: 25 MG/KG, TID

REACTIONS (12)
  - ARTHRALGIA [None]
  - BIOPSY LIVER ABNORMAL [None]
  - BONE MARROW TRANSPLANT [None]
  - CARDIAC FAILURE CONGESTIVE [None]
  - CARDIOMYOPATHY [None]
  - DISEASE RECURRENCE [None]
  - DYSPNOEA [None]
  - EJECTION FRACTION DECREASED [None]
  - HEPATITIS C [None]
  - JOINT SWELLING [None]
  - SIDEROBLASTIC ANAEMIA [None]
  - VESTIBULAR DISORDER [None]
